FAERS Safety Report 20083371 (Version 4)
Quarter: 2022Q1

REPORT INFORMATION
  Report Type: Report from Study
  Country: CN (occurrence: None)
  Receive Date: 20211117
  Receipt Date: 20220112
  Transmission Date: 20220423
  Serious: Yes (Hospitalization)
  Sender: FDA-Public Use
  Company Number: CN-ROCHE-2954488

PATIENT
  Age: 68 Year
  Sex: Male
  Weight: 47 kg

DRUGS (16)
  1. ATEZOLIZUMAB [Suspect]
     Active Substance: ATEZOLIZUMAB
     Indication: Oesophageal carcinoma
     Dosage: ADMINISTERED BY INTRAVENOUS (IV) INFUSION EVERY 3 WEEKS (Q3W) ON DAY 1 OF EACH 21-DAY CYCLE.?START D
     Route: 041
     Dates: start: 20211027
  2. TIRAGOLUMAB [Suspect]
     Active Substance: TIRAGOLUMAB
     Indication: Oesophageal carcinoma
     Dosage: START DATE OF MOST RECENT DOSE OF STUDY DRUG PRIOR TO AE AND SAE: 27/OCT/2021
     Route: 042
     Dates: start: 20211027
  3. PACLITAXEL [Suspect]
     Active Substance: PACLITAXEL
     Indication: Oesophageal carcinoma
     Dosage: START DATE OF MOST RECENT DOSE OF STUDY DRUG PRIOR TO AE/ SAE 27/OCT/2021
     Route: 042
     Dates: start: 20211027
  4. CISPLATIN [Suspect]
     Active Substance: CISPLATIN
     Indication: Oesophageal carcinoma
     Dosage: START DATE OF MOST RECENT DOSE OF STUDY DRUG PRIOR TO AE/ SAE 27/OCT/2021
     Route: 042
     Dates: start: 20211027
  5. POTASSIUM CHLORIDE [Concomitant]
     Active Substance: POTASSIUM CHLORIDE
     Dosage: GIVEN FOR PROPHYLAXIS IS YES ;ONGOING: NO
     Dates: start: 20211026, end: 20211101
  6. SODIUM BICARBONATE [Concomitant]
     Active Substance: SODIUM BICARBONATE
     Dosage: GIVEN FOR PROPHYLAXIS IS YES ;ONGOING: NO
     Route: 048
     Dates: start: 20211026, end: 20211101
  7. MAGNESIUM ISOGLYCYRRHIZINATE [Concomitant]
     Active Substance: MAGNESIUM ISOGLYCYRRHIZINATE
     Dosage: GIVEN FOR PROPHYLAXIS IS YES ;ONGOING: NO
     Dates: start: 20211027, end: 20211101
  8. PALONOSETRON HYDROCHLORIDE [Concomitant]
     Active Substance: PALONOSETRON HYDROCHLORIDE
     Dosage: GIVEN FOR PROPHYLAXIS IS YES ;ONGOING: NO
     Dates: start: 20211027, end: 20211030
  9. METOCLOPRAMIDE HYDROCHLORIDE [Concomitant]
     Active Substance: METOCLOPRAMIDE HYDROCHLORIDE
     Dosage: GIVEN FOR PROPHYLAXIS IS YES ;ONGOING: NO
     Dates: start: 20211027, end: 20211030
  10. DIPHENHYDRAMINE HYDROCHLORIDE [Concomitant]
     Active Substance: DIPHENHYDRAMINE HYDROCHLORIDE
     Dosage: GIVEN FOR PROPHYLAXIS IS YES ;ONGOING: NO
     Dates: start: 20211027, end: 20211030
  11. ROXATIDINE ACETATE HYDROCHLORIDE [Concomitant]
     Active Substance: ROXATIDINE ACETATE HYDROCHLORIDE
     Dosage: GIVEN FOR PROPHYLAXIS IS YES ;ONGOING: NO
     Dates: start: 20211027, end: 20211101
  12. TORSEMIDE [Concomitant]
     Active Substance: TORSEMIDE
     Indication: Polyuria
     Dosage: GIVEN FOR PROPHYLAXIS IS YES ;ONGOING: NO
     Dates: start: 20211026, end: 20211028
  13. DEXAMETHASONE SODIUM PHOSPHATE [Concomitant]
     Active Substance: DEXAMETHASONE SODIUM PHOSPHATE
     Dosage: GIVEN FOR PROPHYLAXIS IS YES ;ONGOING: NO
     Route: 042
     Dates: start: 20211027, end: 20211027
  14. DEXAMETHASONE SODIUM PHOSPHATE [Concomitant]
     Active Substance: DEXAMETHASONE SODIUM PHOSPHATE
     Route: 042
     Dates: start: 20211108, end: 20211108
  15. CIMETIDINE [Concomitant]
     Active Substance: CIMETIDINE
     Indication: Allergy prophylaxis
     Dosage: GIVEN FOR PROPHYLAXIS IS YES ;ONGOING: NO
     Dates: start: 20211027, end: 20211027
  16. COMPOUND SALVIA TABLET [Concomitant]
     Route: 048
     Dates: start: 20211109, end: 20211122

REACTIONS (1)
  - Neutrophil count decreased [Recovered/Resolved]

NARRATIVE: CASE EVENT DATE: 20211108
